FAERS Safety Report 21039440 (Version 1)
Quarter: 2022Q3

REPORT INFORMATION
  Report Type: Report from Study
  Country: GB (occurrence: GB)
  Receive Date: 20220704
  Receipt Date: 20220704
  Transmission Date: 20221026
  Serious: Yes (Other)
  Sender: FDA-Public Use
  Company Number: GB-NOVARTISPH-NVSC2022GB142465

PATIENT
  Sex: Male

DRUGS (2)
  1. MAYZENT [Suspect]
     Active Substance: SIPONIMOD
     Indication: Multiple sclerosis
     Dosage: UNK UNK, QMO
     Route: 048
     Dates: start: 20220527
  2. MAYZENT [Suspect]
     Active Substance: SIPONIMOD
     Dosage: UNK UNK, QD
     Route: 048

REACTIONS (8)
  - Hallucination [Unknown]
  - Malaise [Unknown]
  - Peripheral swelling [Unknown]
  - Memory impairment [Unknown]
  - Decreased appetite [Unknown]
  - Feeling abnormal [Unknown]
  - Headache [Unknown]
  - Drug ineffective [Unknown]
